FAERS Safety Report 7929293-0 (Version None)
Quarter: 2011Q4

REPORT INFORMATION
  Report Type: 
  Country: None (occurrence: None)
  Receive Date: 20111121
  Receipt Date: 20111110
  Transmission Date: 20120403
  Serious: No
  Sender: FDA-Public Use
  Company Number: US-BIOGENIDEC-2011BI041329

PATIENT
  Sex: Male

DRUGS (6)
  1. EPIDURAL STEROID INJECTION [Concomitant]
     Dates: start: 20110101
  2. EPIDURAL STEROID INJECTION [Concomitant]
     Dates: start: 20100501
  3. EPIDURAL STEROID INJECTION [Concomitant]
     Dates: start: 20101201
  4. TYSABRI [Suspect]
     Indication: MULTIPLE SCLEROSIS
     Route: 042
     Dates: start: 20090929
  5. EPIDURAL STEROID INJECTION [Concomitant]
     Indication: BACK PAIN
     Dates: start: 20100401
  6. XANAX [Concomitant]
     Indication: POST-TRAUMATIC STRESS DISORDER

REACTIONS (15)
  - LUMBAR SPINAL STENOSIS [None]
  - HEADACHE [None]
  - CATARACT [None]
  - EMOTIONAL DISTRESS [None]
  - HYPOTENSION [None]
  - DIABETES MELLITUS [None]
  - HAIR GROWTH ABNORMAL [None]
  - INTERVERTEBRAL DISC DEGENERATION [None]
  - FACET JOINT SYNDROME [None]
  - POST-TRAUMATIC STRESS DISORDER [None]
  - DEHYDRATION [None]
  - POOR VENOUS ACCESS [None]
  - FATIGUE [None]
  - CONFUSIONAL STATE [None]
  - CONTUSION [None]
